FAERS Safety Report 25506846 (Version 1)
Quarter: 2025Q3

REPORT INFORMATION
  Report Type: Spontaneous
  Country: US (occurrence: US)
  Receive Date: 20250702
  Receipt Date: 20250702
  Transmission Date: 20251021
  Serious: No
  Sender: RADIUS PHARM
  Company Number: US-RADIUS HEALTH INC.-US-RADIUS-25046359

PATIENT
  Sex: Female

DRUGS (1)
  1. TYMLOS [Suspect]
     Active Substance: ABALOPARATIDE
     Indication: Osteoporosis postmenopausal
     Dosage: 80 MICROGRAM, QD
     Route: 058

REACTIONS (9)
  - Drug delivery system malfunction [Unknown]
  - Injection site bruising [Unknown]
  - Palpitations [Not Recovered/Not Resolved]
  - Product administration error [Unknown]
  - Device issue [Unknown]
  - Product administered at inappropriate site [Unknown]
  - Arthralgia [Not Recovered/Not Resolved]
  - Pain in extremity [Not Recovered/Not Resolved]
  - Circumstance or information capable of leading to medication error [Unknown]
